FAERS Safety Report 12175088 (Version 3)
Quarter: 2016Q2

REPORT INFORMATION
  Report Type: Spontaneous
  Country: US (occurrence: US)
  Receive Date: 20160314
  Receipt Date: 20160406
  Transmission Date: 20160815
  Serious: Yes (Hospitalization, Other)
  Sender: FDA-Public Use
  Company Number: US-SMITH AND NEPHEW, INC-2016SMT00201

PATIENT
  Age: 72 Year
  Sex: Female
  Weight: 89.34 kg

DRUGS (1)
  1. REGRANEX [Suspect]
     Active Substance: BECAPLERMIN
     Indication: WOUND
     Dosage: UNK, 1X/DAY
     Route: 061
     Dates: end: 20160301

REACTIONS (5)
  - Cardiac disorder [Unknown]
  - Gangrene [Recovered/Resolved with Sequelae]
  - Hypersomnia [Unknown]
  - Blood glucose increased [Recovering/Resolving]
  - Toe amputation [Recovered/Resolved with Sequelae]

NARRATIVE: CASE EVENT DATE: 201603
